FAERS Safety Report 8288395-2 (Version None)
Quarter: 2012Q2

REPORT INFORMATION
  Report Type: 
  Country: None (occurrence: None)
  Receive Date: 20120416
  Receipt Date: 20120405
  Transmission Date: 20120825
  Serious: Yes (Hospitalization, Other)
  Sender: FDA-Public Use
  Company Number: US-BAXTER-2011BH027082

PATIENT
  Sex: Male

DRUGS (1)
  1. DIANEAL [Suspect]
     Indication: PERITONEAL DIALYSIS
     Route: 033

REACTIONS (5)
  - CHEST PAIN [None]
  - CARDIAC FLUTTER [None]
  - PERITONEAL DIALYSIS COMPLICATION [None]
  - PALPITATIONS [None]
  - PERITONITIS BACTERIAL [None]
